FAERS Safety Report 4835761-0 (Version None)
Quarter: 2005Q4

REPORT INFORMATION
  Report Type: 
  Country: None (occurrence: None)
  Receive Date: 20051123
  Receipt Date: 20051020
  Transmission Date: 20060501
  Serious: Yes (Other)
  Sender: FDA-Public Use
  Company Number: CA-GLAXOSMITHKLINE-A0579261A

PATIENT
  Age: 33 Year
  Sex: Female
  Weight: 56.8 kg

DRUGS (1)
  1. MALARONE [Suspect]
     Indication: MALARIA PROPHYLAXIS
     Dosage: 1TAB PER DAY
     Route: 048

REACTIONS (7)
  - DIARRHOEA [None]
  - DRUG INEFFECTIVE [None]
  - HYPERHIDROSIS [None]
  - IRRITABLE BOWEL SYNDROME [None]
  - MALARIA [None]
  - NAUSEA [None]
  - PYREXIA [None]
